FAERS Safety Report 18901097 (Version 3)
Quarter: 2021Q1

REPORT INFORMATION
  Report Type: Report from Study
  Country: MX (occurrence: MX)
  Receive Date: 20210216
  Receipt Date: 20210318
  Transmission Date: 20210420
  Serious: Yes (Other)
  Sender: FDA-Public Use
  Company Number: NVSC2021MX033194

PATIENT
  Age: 81 Year
  Sex: Female
  Weight: 68 kg

DRUGS (6)
  1. EXFORGE HCT [Suspect]
     Active Substance: AMLODIPINE BESYLATE\HYDROCHLOROTHIAZIDE\VALSARTAN
     Indication: HYPERTENSION
     Dosage: 1 DF, BID (MORE THAN 1 YEAR)
     Route: 048
  2. EXFORGE HCT [Suspect]
     Active Substance: AMLODIPINE BESYLATE\HYDROCHLOROTHIAZIDE\VALSARTAN
     Dosage: 1 DF, BID (MORE THAN A YESR)
     Route: 048
  3. METFORMINA + GLIBENCLAMIDA [Concomitant]
     Active Substance: GLYBURIDE\METFORMIN
     Indication: DIABETES MELLITUS
     Dosage: 0.5 DF (500/5 MG), QD IIN THE BREAKFAST)
     Route: 048
  4. ELIQUIS [Concomitant]
     Active Substance: APIXABAN
     Indication: HYPERTENSION
     Dosage: 2 DF, BID (5 MG), BID, IN THE MORNING AND NIGHT)
     Route: 048
  5. ATORVASTATIN [Concomitant]
     Active Substance: ATORVASTATIN
     Indication: DIABETES MELLITUS
     Dosage: 1 DF (20 MG), EVERRY 3RD DAY
     Route: 047
  6. METFORMINA + GLIBENCLAMIDA [Concomitant]
     Active Substance: GLYBURIDE\METFORMIN
     Dosage: 1 DF, QD (5/500 MG), IN THE DINNER
     Route: 048

REACTIONS (4)
  - Infection [Unknown]
  - Visual impairment [Recovering/Resolving]
  - Ocular discomfort [Recovering/Resolving]
  - Off label use [Unknown]

NARRATIVE: CASE EVENT DATE: 20210208
